FAERS Safety Report 13616488 (Version 1)
Quarter: 2017Q2

REPORT INFORMATION
  Report Type: Spontaneous
  Country: US (occurrence: US)
  Receive Date: 20170606
  Receipt Date: 20170606
  Transmission Date: 20170830
  Serious: Yes (Disabling)
  Sender: FDA-Public Use
  Company Number: None

PATIENT
  Age: 76 Year
  Sex: Female
  Weight: 61.69 kg

DRUGS (8)
  1. NADOLOL. [Concomitant]
     Active Substance: NADOLOL
  2. GAS-X [Concomitant]
     Active Substance: DIMETHICONE
  3. HARVONI [Suspect]
     Active Substance: LEDIPASVIR\SOFOSBUVIR
     Indication: HEPATITIS C
     Route: 048
     Dates: start: 20160911, end: 20161105
  4. SOLGER VM-75 MULTI NATURE^S PLUS [Concomitant]
  5. NATURE^S PLUS CAL [Concomitant]
  6. VITAMIN D3 [Concomitant]
     Active Substance: CHOLECALCIFEROL
  7. MAG [Concomitant]
  8. VITAMIN D [Concomitant]
     Active Substance: CHOLECALCIFEROL

REACTIONS (8)
  - Gait disturbance [None]
  - Insomnia [None]
  - Asthenia [None]
  - Muscular weakness [None]
  - Alopecia [None]
  - Chills [None]
  - Urinary tract inflammation [None]
  - Confusional state [None]

NARRATIVE: CASE EVENT DATE: 20161005
